FAERS Safety Report 5304480-9 (Version None)
Quarter: 2007Q2

REPORT INFORMATION
  Report Type: 
  Country: None (occurrence: None)
  Receive Date: 20070417
  Receipt Date: 20070417
  Transmission Date: 20071010
  Serious: Yes (Life-Threatening, Hospitalization, Disabling)
  Sender: FDA-Public Use
  Company Number: None

PATIENT
  Age: 57 Year
  Sex: Male
  Weight: 84.369 kg

DRUGS (6)
  1. XIGRIS [Suspect]
     Indication: SEPTIC SHOCK
     Dosage: 24 MCG/KG/HR IV
     Route: 042
     Dates: start: 20070225, end: 20070301
  2. CUBICIN [Concomitant]
  3. FLUCONAZOLE [Concomitant]
  4. VANCOMYCIN [Concomitant]
  5. PEPCID [Concomitant]
  6. HALOPERIDOL [Concomitant]

REACTIONS (3)
  - FACIAL PALSY [None]
  - INTRACRANIAL HAEMATOMA [None]
  - MENTAL STATUS CHANGES [None]
